FAERS Safety Report 9746785 (Version 2)
Quarter: 2014Q1

REPORT INFORMATION
  Report Type: Spontaneous
  Country: GB (occurrence: GB)
  Receive Date: 20131211
  Receipt Date: 20140124
  Transmission Date: 20141002
  Serious: Yes (Other)
  Sender: FDA-Public Use
  Company Number: CHNY2013GB002847

PATIENT
  Sex: Male

DRUGS (1)
  1. OTRIVINE ADULT MEASURED DOSE SINUSITIS SPRAY [Suspect]

REACTIONS (2)
  - Anosmia [Unknown]
  - Ageusia [Unknown]
